FAERS Safety Report 7601769-5 (Version None)
Quarter: 2011Q3

REPORT INFORMATION
  Report Type: 
  Country: None (occurrence: None)
  Receive Date: 20110711
  Receipt Date: 20110706
  Transmission Date: 20111222
  Serious: Yes (Hospitalization)
  Sender: FDA-Public Use
  Company Number: FR-US-EMD SERONO, INC.-220006N08FRA

PATIENT
  Sex: Female
  Weight: 61 kg

DRUGS (13)
  1. LEXOMIL [Concomitant]
     Indication: DEPRESSION
  2. ATORVASTATIN CALCIUM [Concomitant]
     Indication: DYSLIPIDAEMIA
     Dates: start: 20080101
  3. SAIZEN [Suspect]
     Route: 058
     Dates: start: 20041015
  4. SAIZEN [Suspect]
     Dates: start: 20090919
  5. SAIZEN [Suspect]
     Indication: GROWTH HORMONE DEFICIENCY
     Route: 058
     Dates: start: 20070820, end: 20080928
  6. HYDROCORTISONE [Concomitant]
     Indication: HYPOPITUITARISM
     Dates: start: 20000401
  7. AMITRIPTYLINE HCL [Concomitant]
     Indication: DEPRESSION
     Dates: start: 20070101
  8. MAGNE B6 [Concomitant]
     Indication: MAGNESIUM DEFICIENCY
     Dates: start: 20060116
  9. POTASSIUM CHLORIDE [Concomitant]
     Indication: GASTROINTESTINAL DISORDER
     Dates: start: 20060101
  10. ANDROCUR 50 [Concomitant]
     Indication: POLYCYSTIC OVARIES
  11. CITALOPRAM [Concomitant]
     Indication: DEPRESSION
  12. ESTREVA [Concomitant]
     Indication: POLYCYSTIC OVARIES
  13. DOSTINEX 0.5 [Concomitant]
     Indication: HYPERPROLACTINAEMIA
     Dates: start: 20070901

REACTIONS (1)
  - MENINGIOMA [None]
